FAERS Safety Report 7528341-X (Version None)
Quarter: 2011Q2

REPORT INFORMATION
  Report Type: 
  Country: None (occurrence: None)
  Receive Date: 20110607
  Receipt Date: 20110112
  Transmission Date: 20111010
  Serious: No
  Sender: FDA-Public Use
  Company Number: US-ASTRAZENECA-2011SE04810

PATIENT
  Age: 50 Year
  Sex: Female

DRUGS (7)
  1. ORTHO BIOTIC [Concomitant]
     Dosage: UNKNOWN
  2. MULTI-VITAMINS [Concomitant]
     Dosage: UNKNOWN
  3. CALCIUM CARBONATE [Concomitant]
     Dosage: UNKNOWN
  4. PRILOSEC OTC [Suspect]
     Indication: DYSPEPSIA
     Route: 048
     Dates: start: 20110109
  5. SUPPLEMENTS [Concomitant]
     Dosage: UNKNOWN
  6. ASPIRIN [Concomitant]
     Dosage: UNKNOWN
  7. FISH OIL [Concomitant]
     Dosage: UNKNOWN

REACTIONS (4)
  - BACK PAIN [None]
  - DRUG INEFFECTIVE [None]
  - FLATULENCE [None]
  - GASTROINTESTINAL SOUNDS ABNORMAL [None]
